FAERS Safety Report 13675582 (Version 1)
Quarter: 2017Q2

REPORT INFORMATION
  Report Type: Spontaneous
  Country: US (occurrence: US)
  Receive Date: 20170621
  Receipt Date: 20170621
  Transmission Date: 20170830
  Serious: No
  Sender: FDA-Public Use
  Company Number: US-TAIHO ONCOLOGY INC-EU-2017-00899

PATIENT
  Age: 76 Year
  Sex: Male

DRUGS (1)
  1. LONSURF [Suspect]
     Active Substance: TIPIRACIL HYDROCHLORIDE\TRIFLURIDINE
     Indication: NEOPLASM MALIGNANT
     Dosage: 1 TABLET OF 15 MG AND 2 TABLETS OF 20 MG ON DAYS 1-5 AND 8-12
     Route: 048
     Dates: start: 20170201, end: 20170508

REACTIONS (4)
  - Malaise [Unknown]
  - Nausea [Unknown]
  - Inappropriate schedule of drug administration [Unknown]
  - Vomiting [Unknown]

NARRATIVE: CASE EVENT DATE: 2017
